FAERS Safety Report 7321485-7 (Version None)
Quarter: 2011Q1

REPORT INFORMATION
  Report Type: 
  Country: None (occurrence: None)
  Receive Date: 20110228
  Receipt Date: 20100429
  Transmission Date: 20110831
  Serious: No
  Sender: FDA-Public Use
  Company Number: US-PFIZER INC-2010055119

PATIENT
  Sex: Female
  Weight: 111 kg

DRUGS (18)
  1. TRICOR [Concomitant]
     Dosage: 145 MG, 1X/DAY
  2. METFORMIN [Concomitant]
     Dosage: 1000 MG, 2X/DAY
  3. VITAMIN B6 [Concomitant]
     Dosage: 50 MG, 2X/DAY
  4. GLIMEPIRIDE [Concomitant]
     Dosage: 4 MG, 2X/DAY
  5. LISINOPRIL AND HYDROCHLOROTHIAZIDE [Concomitant]
     Indication: HYPERTENSION
     Dosage: 20/12.5 MG
  6. CYMBALTA [Concomitant]
     Dosage: 120 MG, 2X/DAY
     Route: 048
  7. PLAVIX [Concomitant]
     Dosage: 75 MG, 1X/DAY
  8. TRAZODONE [Concomitant]
     Dosage: 150 MG, ONE AT NIGHT TIME
  9. ESTRADIOL [Concomitant]
     Dosage: 1 MG, 1X/DAY
  10. TOPAMAX [Concomitant]
     Dosage: 50 MG, 2X/DAY
  11. GEODON [Suspect]
     Indication: BIPOLAR DISORDER
     Dosage: 60 MG, 2X/DAY
     Route: 048
     Dates: start: 20090101
  12. GEODON [Suspect]
     Dosage: 80 MG, 2X/DAY
     Dates: start: 20100416
  13. VITAMIN D [Concomitant]
     Dosage: ONE IN THE MORNING
  14. LANTUS [Concomitant]
     Dosage: 20 UNITS, ONCE AT BED TIME
  15. GEODON [Suspect]
     Dosage: 60 MG, 2X/DAY
     Dates: start: 20100401
  16. CALCIUM [Concomitant]
     Dosage: ONE IN THE MORNING
  17. NEXIUM [Concomitant]
     Dosage: 40 MG, 1X/DAY
  18. POTASSIUM [Concomitant]
     Dosage: 99 MG, 2X/DAY

REACTIONS (4)
  - VITREOUS FLOATERS [None]
  - HYPERHIDROSIS [None]
  - DRUG INEFFECTIVE [None]
  - DRUG INTOLERANCE [None]
